FAERS Safety Report 9416925 (Version 1)
Quarter: 2013Q3

REPORT INFORMATION
  Report Type: Spontaneous
  Country: US (occurrence: US)
  Receive Date: 20130724
  Receipt Date: 20130724
  Transmission Date: 20140515
  Serious: No
  Sender: FDA-Public Use
  Company Number: US-009507513-1307USA010694

PATIENT
  Sex: Female

DRUGS (1)
  1. AZASITE [Suspect]
     Indication: EYE INFECTION
     Dosage: 2 DF, QD
     Route: 047
     Dates: start: 20130628

REACTIONS (6)
  - Drug dose omission [Unknown]
  - Product packaging quantity issue [Unknown]
  - Incorrect product storage [Unknown]
  - Incorrect drug administration duration [Unknown]
  - Inappropriate schedule of drug administration [Unknown]
  - No adverse event [Unknown]
